FAERS Safety Report 10015742 (Version 4)
Quarter: 2016Q2

REPORT INFORMATION
  Report Type: Spontaneous
  Country: US (occurrence: US)
  Receive Date: 20140317
  Receipt Date: 20160404
  Transmission Date: 20160815
  Serious: Yes (Other)
  Sender: FDA-Public Use
  Company Number: US-BAYER-2014-039404

PATIENT
  Age: 22 Year
  Sex: Female
  Weight: 56.69 kg

DRUGS (2)
  1. SERTRALINE [Concomitant]
     Active Substance: SERTRALINE HYDROCHLORIDE
     Indication: POSTPARTUM DEPRESSION
     Dosage: UNK
     Dates: start: 2009
  2. MIRENA [Suspect]
     Active Substance: LEVONORGESTREL
     Indication: CONTRACEPTION
     Dosage: 20 MCG/24HR, CONT
     Route: 015
     Dates: start: 20090403, end: 20120303

REACTIONS (8)
  - Infertility female [Not Recovered/Not Resolved]
  - Maternal exposure before pregnancy [None]
  - Uterine perforation [None]
  - Abortion spontaneous [None]
  - Injury [None]
  - Device issue [None]
  - Pain [None]
  - Abdominal pain lower [None]

NARRATIVE: CASE EVENT DATE: 201202
